FAERS Safety Report 6412307-7 (Version None)
Quarter: 2009Q4

REPORT INFORMATION
  Report Type: 
  Country: None (occurrence: None)
  Receive Date: 20091023
  Receipt Date: 20091013
  Transmission Date: 20100525
  Serious: Yes (Hospitalization)
  Sender: FDA-Public Use
  Company Number: US-BIOGENIDEC-2009BI028049

PATIENT
  Age: 53 Year
  Sex: Female

DRUGS (5)
  1. AVONEX [Suspect]
     Indication: MULTIPLE SCLEROSIS
     Route: 030
     Dates: start: 20010118
  2. AVONEX [Suspect]
     Route: 030
     Dates: start: 20091007
  3. BETASERON [Concomitant]
     Dates: end: 20090820
  4. BLOOD THINNER (NOS) [Concomitant]
  5. BLOOD PRESSURE MEDICATION (NOS) [Concomitant]

REACTIONS (2)
  - CORONARY ARTERY DISEASE [None]
  - JOINT STIFFNESS [None]
